FAERS Safety Report 14757511 (Version 2)
Quarter: 2018Q2

REPORT INFORMATION
  Report Type: Report from Study
  Country: CA (occurrence: CA)
  Receive Date: 20180413
  Receipt Date: 20180416
  Transmission Date: 20180711
  Serious: Yes (Other)
  Sender: FDA-Public Use
  Company Number: CA-HLSUS-2018-CA-000592

PATIENT
  Age: 58 Year
  Sex: Male

DRUGS (1)
  1. CLOZARIL [Suspect]
     Active Substance: CLOZAPINE
     Route: 048
     Dates: start: 20120608

REACTIONS (7)
  - Leukopenia [Unknown]
  - Neutropenia [Unknown]
  - Oropharyngeal pain [Unknown]
  - Lymphoma [Unknown]
  - Splenomegaly [Unknown]
  - Upper respiratory tract infection [Unknown]
  - Rhinorrhoea [Unknown]

NARRATIVE: CASE EVENT DATE: 201602
